FAERS Safety Report 7753108-7 (Version None)
Quarter: 2011Q3

REPORT INFORMATION
  Report Type: 
  Country: None (occurrence: None)
  Receive Date: 20110915
  Receipt Date: 20110907
  Transmission Date: 20111222
  Serious: Yes (Hospitalization)
  Sender: FDA-Public Use
  Company Number: BE-SANOFI-AVENTIS-2011SA057739

PATIENT
  Age: 46 Year
  Sex: Female
  Weight: 73 kg

DRUGS (7)
  1. PHENERGAN HCL [Concomitant]
     Indication: PREMEDICATION
     Dosage: FROM 18-FEB-2011: 1 AMPOULE (NOS).
     Route: 065
     Dates: start: 20110201
  2. DOCETAXEL [Suspect]
     Indication: BREAST CANCER
     Route: 042
     Dates: start: 20110217, end: 20110218
  3. TRASTUZUMAB [Concomitant]
     Indication: BREAST CANCER
     Route: 065
  4. ZANTAC [Concomitant]
     Indication: PREMEDICATION
     Dosage: FROM 18-FEB-2011: 50 (UNITS NOS).
     Route: 042
     Dates: start: 20110201
  5. CARBOPLATIN [Suspect]
     Indication: BREAST CANCER
     Route: 065
  6. MEDROL [Concomitant]
     Indication: PREMEDICATION
     Dosage: FROM 18-FEB-2011: 32 MG H-12 AND H-3.
     Route: 065
     Dates: start: 20110201
  7. DEXAMETHASONE [Concomitant]
     Indication: PREMEDICATION
     Dosage: FROM 18-FEB-2011: 20 MG 1 H BEFORE DOCETAXEL.
     Route: 042
     Dates: start: 20110201

REACTIONS (13)
  - PARAESTHESIA [None]
  - FEBRILE NEUTROPENIA [None]
  - SEPTIC SHOCK [None]
  - DIARRHOEA [None]
  - ELECTROLYTE IMBALANCE [None]
  - METABOLIC ACIDOSIS [None]
  - HYPOTENSION [None]
  - SWELLING FACE [None]
  - HYPERSENSITIVITY [None]
  - DYSPNOEA [None]
  - RENAL FAILURE ACUTE [None]
  - COLITIS [None]
  - HYPERLACTACIDAEMIA [None]
